FAERS Safety Report 4703688-0 (Version None)
Quarter: 2005Q2

REPORT INFORMATION
  Report Type: 
  Country: None (occurrence: None)
  Receive Date: 20050628
  Receipt Date: 20050610
  Transmission Date: 20051028
  Serious: Yes (Hospitalization)
  Sender: FDA-Public Use
  Company Number: US_0506118664

PATIENT
  Age: 25 Year
  Sex: Male
  Weight: 68.0396 kg

DRUGS (2)
  1. OLANZAPINE [Suspect]
     Indication: SCHIZOPHRENIA
     Dosage: 10 MG DAY
  2. OLANZAPINE [Suspect]
     Indication: SCHIZOPHRENIA
     Dosage: 10 MG DAY

REACTIONS (16)
  - ABDOMINAL DISCOMFORT [None]
  - ABDOMINAL DISTENSION [None]
  - ABDOMINAL PAIN [None]
  - ALANINE AMINOTRANSFERASE INCREASED [None]
  - BLOOD CHOLESTEROL INCREASED [None]
  - BOWEL SOUNDS ABNORMAL [None]
  - GLYCOSYLATED HAEMOGLOBIN INCREASED [None]
  - HYPERTRIGLYCERIDAEMIA [None]
  - HYPOCALCAEMIA [None]
  - NAUSEA [None]
  - PANCREATITIS ACUTE [None]
  - POLYDIPSIA [None]
  - POLYURIA [None]
  - RENAL FAILURE [None]
  - VOMITING [None]
  - WHITE BLOOD CELL COUNT INCREASED [None]
